FAERS Safety Report 5288171-9 (Version None)
Quarter: 2007Q1

REPORT INFORMATION
  Report Type: 
  Country: None (occurrence: None)
  Receive Date: 20070116
  Receipt Date: 20061019
  Transmission Date: 20070707
  Serious: No
  Sender: FDA-Public Use
  Company Number: 2006SP003753

PATIENT
  Age: 46 Year
  Sex: Female
  Weight: 88.4514 kg

DRUGS (4)
  1. LUNESTA [Suspect]
     Indication: INSOMNIA
     Dosage: 2 MG;ORAL
     Route: 048
     Dates: start: 20061014, end: 20061018
  2. CAPTOPRIL [Concomitant]
  3. PROZAC [Concomitant]
  4. XANAX [Concomitant]

REACTIONS (1)
  - PARADOXICAL DRUG REACTION [None]
